FAERS Safety Report 4494994-6 (Version None)
Quarter: 2004Q4

REPORT INFORMATION
  Report Type: 
  Country: None (occurrence: None)
  Receive Date: 20041108
  Receipt Date: 20041028
  Transmission Date: 20050328
  Serious: Yes (Other)
  Sender: FDA-Public Use
  Company Number: JP-JNJFOC-20040808729

PATIENT
  Sex: Female
  Weight: 42 kg

DRUGS (9)
  1. REMICADE [Suspect]
  2. REMICADE [Suspect]
  3. REMICADE [Suspect]
  4. REMICADE [Suspect]
     Indication: CROHN'S DISEASE
  5. PREDONINE [Concomitant]
  6. RHEUMATREX [Concomitant]
     Route: 049
  7. AZULIFIDINE [Concomitant]
     Route: 049
  8. LENDORMIN [Concomitant]
     Route: 049
  9. HALCION [Concomitant]

REACTIONS (4)
  - ACUTE RESPIRATORY FAILURE [None]
  - HEADACHE [None]
  - INFUSION RELATED REACTION [None]
  - RHEUMATOID ARTHRITIS [None]
